FAERS Safety Report 12199201 (Version 1)
Quarter: 2016Q1

REPORT INFORMATION
  Report Type: Report from Study
  Country: NL (occurrence: NL)
  Receive Date: 20160322
  Receipt Date: 20160322
  Transmission Date: 20160526
  Serious: Yes (Other)
  Sender: FDA-Public Use
  Company Number: PHHY2016NL037015

PATIENT
  Sex: Female

DRUGS (1)
  1. SANDOSTATIN LAR DEPOT [Suspect]
     Active Substance: OCTREOTIDE ACETATE
     Indication: MALIGNANT ASCITES
     Dosage: 30 MG/2 ML, QMO (1 X PER 4 WEEKS)
     Route: 030

REACTIONS (2)
  - Product use issue [Unknown]
  - Terminal state [Unknown]
